FAERS Safety Report 6848639-8 (Version None)
Quarter: 2010Q3

REPORT INFORMATION
  Report Type: 
  Country: None (occurrence: None)
  Receive Date: 20100716
  Receipt Date: 20100707
  Transmission Date: 20110219
  Serious: Yes (Hospitalization)
  Sender: FDA-Public Use
  Company Number: US-ABBOTT-10P-163-0656172-00

PATIENT
  Sex: Male

DRUGS (9)
  1. NIASPAN [Suspect]
     Indication: HIGH DENSITY LIPOPROTEIN DECREASED
     Dates: start: 20070101
  2. NIASPAN [Suspect]
     Indication: LOW DENSITY LIPOPROTEIN INCREASED
  3. METFORMIN HCL [Concomitant]
     Indication: DIABETES MELLITUS
  4. GLIPIZIDE [Concomitant]
     Indication: DIABETES MELLITUS
  5. JENUVIA [Concomitant]
     Indication: DIABETES MELLITUS
  6. CHLORTHALIDONE [Concomitant]
     Indication: PRODUCT USED FOR UNKNOWN INDICATION
  7. EXFORGE [Concomitant]
     Indication: PRODUCT USED FOR UNKNOWN INDICATION
  8. ASPIRIN [Concomitant]
     Indication: PRODUCT USED FOR UNKNOWN INDICATION
  9. SIMVASTATIN [Concomitant]
     Indication: PRODUCT USED FOR UNKNOWN INDICATION

REACTIONS (4)
  - BLOOD IRON DECREASED [None]
  - BLOOD PRESSURE INCREASED [None]
  - FLUSHING [None]
  - PARAESTHESIA [None]
